FAERS Safety Report 13051932 (Version 3)
Quarter: 2017Q1

REPORT INFORMATION
  Report Type: Report from Study
  Country: DE (occurrence: DE)
  Receive Date: 20161221
  Receipt Date: 20170213
  Transmission Date: 20170428
  Serious: Yes (Hospitalization)
  Sender: FDA-Public Use
  Company Number: DE-TEVA-719919GER

PATIENT
  Age: 80 Year
  Sex: Female

DRUGS (32)
  1. METFORMIN [Concomitant]
     Active Substance: METFORMIN HYDROCHLORIDE
     Indication: DIABETES MELLITUS
     Dosage: 1000 MILLIGRAM DAILY;
     Route: 048
     Dates: start: 2013
  2. RED BLOOD CELL CONCENTRATE [Concomitant]
     Active Substance: HUMAN RED BLOOD CELL
     Dosage: 1 DF = 1 BAG, TRANSFUSION
     Route: 042
     Dates: start: 20140820, end: 20140820
  3. PIPERACILLIN/TANZOBACTAM [Concomitant]
     Indication: PNEUMONIA
     Dosage: 13.5 GRAM DAILY;
     Route: 042
     Dates: start: 20160709, end: 20160709
  4. VILDAGLIPTIN [Concomitant]
     Active Substance: VILDAGLIPTIN
     Indication: DIABETES MELLITUS
     Dosage: 50 MILLIGRAM DAILY;
     Route: 048
     Dates: start: 2014, end: 2014
  5. SULFAMETHOXAZOLE [Concomitant]
     Active Substance: SULFAMETHOXAZOLE
     Dates: start: 20130613, end: 20130613
  6. RED BLOOD CELL CONCENTRATE [Concomitant]
     Active Substance: HUMAN RED BLOOD CELL
     Indication: ANAEMIA
     Dosage: 1 DF = 1 BAG
     Route: 042
     Dates: start: 20140621, end: 20140622
  7. AMOXICILLIN. [Concomitant]
     Active Substance: AMOXICILLIN
     Indication: INFECTION
     Dosage: AFTER EACH 2 TIMES PER DAY CHEMOTHERAPY CYCLE DAY 6-12 (1G)
     Route: 048
     Dates: start: 20140602, end: 20140608
  8. RITUXIMAB [Suspect]
     Active Substance: RITUXIMAB
     Indication: PRODUCT USED FOR UNKNOWN INDICATION
     Route: 042
     Dates: start: 20140513
  9. PARACETAMOL [Concomitant]
     Active Substance: ACETAMINOPHEN
     Route: 048
     Dates: start: 20140513, end: 20140701
  10. COLECALCIFEROL [Concomitant]
     Active Substance: CHOLECALCIFEROL
     Indication: HYPOVITAMINOSIS
     Dosage: 1000 IU (INTERNATIONAL UNIT) DAILY;
     Route: 048
     Dates: start: 20140528
  11. RITUXIMAB [Suspect]
     Active Substance: RITUXIMAB
     Route: 042
     Dates: start: 20140701
  12. HEPARIN, LOW MOLECULAR WEIGHT [Concomitant]
     Indication: ATRIAL FIBRILLATION
     Dosage: 800 IU (INTERNATIONAL UNIT) DAILY;
     Route: 058
     Dates: start: 20140502, end: 201501
  13. ACETYLDIGOXIN [Concomitant]
     Active Substance: .BETA.-ACETYLDIGOXIN
     Dates: start: 20130613, end: 20130613
  14. SULFAMETHOXAZOLE [Concomitant]
     Active Substance: SULFAMETHOXAZOLE
     Indication: PROPHYLAXIS
     Dosage: 1920 MILLIGRAM DAILY;
     Dates: start: 20140517, end: 20141019
  15. BISOPROLOL [Concomitant]
     Active Substance: BISOPROLOL
     Indication: HYPERTENSION
     Dosage: 5 MILLIGRAM DAILY;
     Route: 048
     Dates: start: 2011
  16. GRANISETRON [Concomitant]
     Active Substance: GRANISETRON
     Indication: NAUSEA
     Dosage: 1 DF= 1 AMPOULE
     Route: 042
     Dates: start: 20140514, end: 20140702
  17. PEGFILGRASTIM [Concomitant]
     Active Substance: PEGFILGRASTIM
     Indication: LEUKOPENIA
     Route: 058
     Dates: start: 20140517, end: 20160808
  18. RITUXIMAB [Suspect]
     Active Substance: RITUXIMAB
     Route: 042
     Dates: start: 20140527
  19. AMLODIPIN [Concomitant]
     Active Substance: AMLODIPINE BESYLATE
     Indication: HYPERTENSION
     Dosage: 5 MILLIGRAM DAILY;
     Route: 048
     Dates: start: 201112, end: 20130523
  20. CLEMASTIN [Concomitant]
     Active Substance: CLEMASTINE
     Dosage: 1 DF= 1 AMPOULE
     Route: 042
     Dates: start: 20140514, end: 20140701
  21. PREDNISONE. [Suspect]
     Active Substance: PREDNISONE
     Indication: PRODUCT USED FOR UNKNOWN INDICATION
     Route: 065
  22. RITUXIMAB [Suspect]
     Active Substance: RITUXIMAB
     Route: 042
     Dates: start: 20140610
  23. SODIUM PERCHLORATE [Concomitant]
     Dosage: 2880 GTT DAILY;
     Route: 048
  24. PHENPROCOUMON [Concomitant]
     Active Substance: PHENPROCOUMON
     Indication: ATRIAL FIBRILLATION
     Dosage: 0.5-1.5 MG DAILY DOSE
     Route: 048
     Dates: start: 20150128
  25. VINCRISTINE [Suspect]
     Active Substance: VINCRISTINE
     Indication: PRODUCT USED FOR UNKNOWN INDICATION
     Route: 065
  26. HYDROXYDAUNORUBICIN [Suspect]
     Active Substance: DOXORUBICIN
     Indication: PRODUCT USED FOR UNKNOWN INDICATION
     Route: 065
  27. CYCLOPHOSPHAMID [Suspect]
     Active Substance: CYCLOPHOSPHAMIDE
     Indication: PRODUCT USED FOR UNKNOWN INDICATION
     Route: 065
  28. SULFAMETHOXAZOLE [Concomitant]
     Active Substance: SULFAMETHOXAZOLE
     Dates: start: 20130524, end: 20130528
  29. RED BLOOD CELL CONCENTRATE [Concomitant]
     Active Substance: HUMAN RED BLOOD CELL
     Dosage: 1 DF = 1 BAG, TRANSFUSION
     Route: 042
     Dates: start: 20140716, end: 20140716
  30. ACETYLDIGOXIN [Concomitant]
     Active Substance: .BETA.-ACETYLDIGOXIN
     Indication: TACHYARRHYTHMIA
     Dosage: .2 MILLIGRAM DAILY;
     Route: 048
     Dates: start: 2008
  31. PARACETAMOL [Concomitant]
     Active Substance: ACETAMINOPHEN
     Route: 048
     Dates: start: 20140621, end: 20140621
  32. AMPHOTERICIN [Concomitant]
     Active Substance: AMPHOTERICIN B
     Indication: STOMATITIS
     Dosage: 1 DF = 1 PIPETTES
     Route: 048
     Dates: start: 20140506, end: 20140618

REACTIONS (2)
  - Hyperthyroidism [Recovered/Resolved]
  - Pancytopenia [Recovered/Resolved]

NARRATIVE: CASE EVENT DATE: 20140618
